APPROVED DRUG PRODUCT: LEUCOVORIN CALCIUM PRESERVATIVE FREE
Active Ingredient: LEUCOVORIN CALCIUM
Strength: EQ 350MG BASE/VIAL
Dosage Form/Route: INJECTABLE;INJECTION
Application: A203800 | Product #003 | TE Code: AP
Applicant: MYLAN LABORATORIES LTD
Approved: May 19, 2017 | RLD: No | RS: No | Type: RX